FAERS Safety Report 24463288 (Version 1)
Quarter: 2024Q4

REPORT INFORMATION
  Report Type: Report from Study
  Country: US (occurrence: US)
  Receive Date: 20241018
  Receipt Date: 20241018
  Transmission Date: 20250115
  Serious: No
  Sender: ROCHE
  Company Number: US-ROCHE-3167031

PATIENT
  Age: 66 Year
  Sex: Female
  Weight: 61.0 kg

DRUGS (6)
  1. XOLAIR [Suspect]
     Active Substance: OMALIZUMAB
     Indication: Urticaria
     Route: 058
     Dates: start: 2017, end: 20220701
  2. XOLAIR [Suspect]
     Active Substance: OMALIZUMAB
     Indication: Pruritus
     Dosage: AT EACH ADMINISTRATION RECEIVES 150MG IN EACH HIP AREA
     Route: 058
     Dates: end: 202304
  3. XOLAIR [Suspect]
     Active Substance: OMALIZUMAB
     Indication: Urticaria
     Dosage: INJECT 300MG SUBCUTANEOUSLY EVERY 4 WEEK(S)
     Route: 058
  4. XOLAIR [Suspect]
     Active Substance: OMALIZUMAB
     Indication: Urticaria chronic
  5. XOLAIR [Suspect]
     Active Substance: OMALIZUMAB
     Indication: Eye pruritus
  6. XOLAIR [Suspect]
     Active Substance: OMALIZUMAB
     Indication: Psoriasis

REACTIONS (5)
  - Urticaria [Not Recovered/Not Resolved]
  - Dyspnoea [Recovered/Resolved]
  - Wheezing [Unknown]
  - Asthma [Unknown]
  - Malaise [Unknown]

NARRATIVE: CASE EVENT DATE: 20220101
